FAERS Safety Report 4780548-0 (Version None)
Quarter: 2005Q3

REPORT INFORMATION
  Report Type: 
  Country: None (occurrence: None)
  Receive Date: 20050926
  Receipt Date: 20050915
  Transmission Date: 20060218
  Serious: Yes (Hospitalization)
  Sender: FDA-Public Use
  Company Number: 2005PV000754

PATIENT
  Age: 43 Year
  Sex: Female
  Weight: 152.4086 kg

DRUGS (18)
  1. BYETTA [Suspect]
     Indication: DIABETES MELLITUS NON-INSULIN-DEPENDENT
     Dosage: SEE IMAGE
     Route: 058
     Dates: start: 20050629, end: 20050101
  2. COUMADIN [Suspect]
     Indication: COAGULOPATHY
     Dates: end: 20050718
  3. COUMADIN [Suspect]
     Indication: COAGULOPATHY
     Dates: start: 20050701
  4. NEURONTIN [Concomitant]
  5. PHENTERMINE [Concomitant]
  6. EFFEXOR XR [Concomitant]
  7. PREVACID [Concomitant]
  8. CLARITIN [Concomitant]
  9. AVANDIA [Concomitant]
  10. CRESTOR [Concomitant]
  11. POTASSIUM CHLORIDE [Concomitant]
  12. LASIX [Concomitant]
  13. TRICOR [Concomitant]
  14. KADIAN [Concomitant]
  15. PROMETHAZINE [Concomitant]
  16. LUNESTA [Concomitant]
  17. GEDODON [Concomitant]
  18. CLONAZEPAM [Concomitant]

REACTIONS (1)
  - INTERNATIONAL NORMALISED RATIO INCREASED [None]
